FAERS Safety Report 8265623-0 (Version None)
Quarter: 2012Q2

REPORT INFORMATION
  Report Type: 
  Country: None (occurrence: None)
  Receive Date: 20120406
  Receipt Date: 20120402
  Transmission Date: 20120825
  Serious: Yes (Hospitalization)
  Sender: FDA-Public Use
  Company Number: US-ACTELION-A-NJ2011-49203

PATIENT

DRUGS (2)
  1. EPOPROSTENOL SODIUM [Suspect]
     Indication: PULMONARY ARTERIAL HYPERTENSION
     Dosage: 28.5 NG/KG, PER MIN
     Route: 041
     Dates: start: 20101006
  2. COUMADIN [Concomitant]

REACTIONS (5)
  - IMPAIRED GASTRIC EMPTYING [None]
  - COELIAC DISEASE [None]
  - DIABETIC COMA [None]
  - DEHYDRATION [None]
  - DIABETIC KETOACIDOSIS [None]
